FAERS Safety Report 4735866-9 (Version None)
Quarter: 2005Q3

REPORT INFORMATION
  Report Type: 
  Country: None (occurrence: None)
  Receive Date: 20050805
  Receipt Date: 20050728
  Transmission Date: 20060218
  Serious: Yes (Hospitalization)
  Sender: FDA-Public Use
  Company Number: US-JNJFOC-20050800371

PATIENT
  Sex: Female

DRUGS (3)
  1. DURAGESIC-100 [Suspect]
     Route: 062
  2. DEXAMETHASONE [Concomitant]
  3. TYLENOL (CAPLET) [Concomitant]
     Dosage: 2 TABLETS EVERY FOUR HOURS AS NEEDED

REACTIONS (2)
  - HYPERHIDROSIS [None]
  - MULTI-ORGAN FAILURE [None]
